FAERS Safety Report 21079313 (Version 3)
Quarter: 2022Q4

REPORT INFORMATION
  Report Type: Report from Study
  Country: US (occurrence: US)
  Receive Date: 20220714
  Receipt Date: 20221214
  Transmission Date: 20230113
  Serious: Yes (Hospitalization, Other)
  Sender: FDA-Public Use
  Company Number: US-ABBVIE-22K-163-4464125-00

PATIENT
  Sex: Female

DRUGS (3)
  1. RINVOQ [Suspect]
     Active Substance: UPADACITINIB
     Indication: Rheumatoid arthritis
     Dosage: 2022 WAS CONSIDERED AS LAST ADMIN DATE
     Route: 048
     Dates: start: 202202
  2. RINVOQ [Suspect]
     Active Substance: UPADACITINIB
     Indication: Rheumatoid arthritis
     Route: 048
     Dates: start: 2022
  3. RINVOQ [Suspect]
     Active Substance: UPADACITINIB
     Indication: Rheumatoid arthritis
     Dosage: 2022 WAS CONSIDERED AS LAST ADMIN DATE
     Route: 048
     Dates: start: 202202

REACTIONS (16)
  - Heart rate increased [Unknown]
  - Wrist fracture [Unknown]
  - Influenza [Recovered/Resolved]
  - Cerebrovascular accident [Unknown]
  - Abdominal abscess [Unknown]
  - Pain [Unknown]
  - Musculoskeletal stiffness [Unknown]
  - Nasopharyngitis [Recovered/Resolved]
  - Pain [Unknown]
  - Fall [Unknown]
  - General physical health deterioration [Unknown]
  - Limb injury [Unknown]
  - Skin discolouration [Unknown]
  - Pain in extremity [Unknown]
  - Peripheral swelling [Unknown]
  - Pain [Unknown]

NARRATIVE: CASE EVENT DATE: 20220101
